FAERS Safety Report 10047644 (Version 2)
Quarter: 2014Q2

REPORT INFORMATION
  Report Type: Spontaneous
  Country: SG (occurrence: SG)
  Receive Date: 20140331
  Receipt Date: 20140428
  Transmission Date: 20141212
  Serious: Yes (Hospitalization, Other)
  Sender: FDA-Public Use
  Company Number: SG-PFIZER INC-2014087588

PATIENT
  Sex: 0

DRUGS (1)
  1. DILANTIN [Suspect]
     Dosage: 100 MG, UNK

REACTIONS (5)
  - Product physical issue [Not Recovered/Not Resolved]
  - Product colour issue [Not Recovered/Not Resolved]
  - Epilepsy [Unknown]
  - Drug level below therapeutic [Recovered/Resolved]
  - Drug level above therapeutic [Not Recovered/Not Resolved]
